FAERS Safety Report 21336194 (Version 4)
Quarter: 2022Q4

REPORT INFORMATION
  Report Type: Report from Study
  Country: CA (occurrence: CA)
  Receive Date: 20220915
  Receipt Date: 20221007
  Transmission Date: 20230113
  Serious: Yes (Other)
  Sender: FDA-Public Use
  Company Number: CA-JNJFOC-20220927315

PATIENT
  Age: 67 Year
  Sex: Female
  Weight: 85 kg

DRUGS (1)
  1. REMICADE [Suspect]
     Active Substance: INFLIXIMAB
     Indication: Crohn^s disease
     Dosage: 4 DOSES OF REMICADE
     Route: 042
     Dates: start: 20220630

REACTIONS (3)
  - Clostridium difficile infection [Not Recovered/Not Resolved]
  - Hypersensitivity [Recovered/Resolved]
  - Drug specific antibody present [Unknown]

NARRATIVE: CASE EVENT DATE: 20220101
